FAERS Safety Report 14378147 (Version 1)
Quarter: 2018Q1

REPORT INFORMATION
  Report Type: Spontaneous
  Country: US (occurrence: US)
  Receive Date: 20180111
  Receipt Date: 20180111
  Transmission Date: 20180509
  Serious: Yes (Other)
  Sender: FDA-Public Use
  Company Number: US-JNJFOC-20180103279

PATIENT
  Sex: Male

DRUGS (10)
  1. ACYCLOVIR. [Concomitant]
     Active Substance: ACYCLOVIR
  2. PRINIVIL [Concomitant]
     Active Substance: LISINOPRIL
  3. ALBUTEROL. [Concomitant]
     Active Substance: ALBUTEROL
     Route: 055
  4. ASPIRIN. [Concomitant]
     Active Substance: ASPIRIN
  5. NOVOLOG [Concomitant]
     Active Substance: INSULIN ASPART
  6. SYMBICORT [Concomitant]
     Active Substance: BUDESONIDE\FORMOTEROL FUMARATE DIHYDRATE
  7. COREG [Concomitant]
     Active Substance: CARVEDILOL
  8. PROTONIX [Concomitant]
     Active Substance: PANTOPRAZOLE SODIUM
  9. DARZALEX [Suspect]
     Active Substance: DARATUMUMAB
     Indication: PLASMA CELL MYELOMA
     Dosage: ON FOR 5 TO 6 WEEKS; THE MOST RECENT ON 21-DEC-2017
     Route: 065
  10. LANTUS [Concomitant]
     Active Substance: INSULIN GLARGINE

REACTIONS (3)
  - Nervous system disorder [Unknown]
  - Aphasia [Unknown]
  - Cognitive disorder [Unknown]
